FAERS Safety Report 7478797-6 (Version None)
Quarter: 2011Q2

REPORT INFORMATION
  Report Type: 
  Country: None (occurrence: None)
  Receive Date: 20110513
  Receipt Date: 20110503
  Transmission Date: 20111010
  Serious: Yes (Hospitalization)
  Sender: FDA-Public Use
  Company Number: US-BAYER-2011-022067

PATIENT
  Age: 43 Year
  Sex: Female
  Weight: 83.9 kg

DRUGS (14)
  1. BUDEPRION [Concomitant]
     Dosage: 150 MG, UNK
     Route: 048
     Dates: start: 20050101, end: 20090101
  2. TRIAZOLAM [Concomitant]
     Dosage: 0.25 MG, UNK
     Route: 048
  3. PRILOSEC [Concomitant]
  4. LUNESTA [Concomitant]
     Dosage: 3 MG, PRN
     Route: 048
  5. MULTI-VITAMIN [Concomitant]
     Indication: MEDICAL DIET
     Route: 048
  6. PERCOCET [Concomitant]
  7. YAZ [Suspect]
     Indication: PRODUCT USED FOR UNKNOWN INDICATION
     Dosage: UNK
     Dates: start: 20070801, end: 20100101
  8. ALBUTEROL [Concomitant]
     Dosage: UNK
     Route: 055
     Dates: start: 20091201
  9. CLINDESSE [Concomitant]
     Route: 067
  10. WELLBUTRIN [Concomitant]
     Dosage: DAILY DOSE 150 MG
     Route: 048
  11. CELEBREX [Concomitant]
     Dosage: 200 MG, BID
     Route: 048
  12. CITALOPRAM HYDROBROMIDE [Concomitant]
     Dosage: 20 MG, QD
     Route: 048
  13. CELEXA [Concomitant]
  14. COLACE [Concomitant]

REACTIONS (4)
  - GALLBLADDER CHOLESTEROLOSIS [None]
  - CHOLELITHIASIS [None]
  - ABDOMINAL PAIN UPPER [None]
  - CHOLECYSTITIS CHRONIC [None]
